FAERS Safety Report 9255549 (Version 2)
Quarter: 2013Q2

REPORT INFORMATION
  Report Type: Spontaneous
  Country: US (occurrence: US)
  Receive Date: 20130425
  Receipt Date: 20130525
  Transmission Date: 20140414
  Serious: No
  Sender: FDA-Public Use
  Company Number: US-009507513-1304USA013851

PATIENT
  Age: 55 Year
  Sex: Male
  Weight: 97.96 kg

DRUGS (6)
  1. VICTRELIS [Suspect]
     Indication: HEPATITIS C
     Dosage: 4 DF, TID
     Route: 048
     Dates: start: 20130308
  2. PEGINTRON [Suspect]
     Indication: HEPATITIS C
     Dosage: UNK
     Dates: start: 20130208
  3. REBETOL [Suspect]
     Indication: HEPATITIS C
     Dosage: UNK
     Route: 048
     Dates: start: 20130208
  4. REBETOL [Suspect]
     Dosage: 200 MG, 3 TABS, BID
     Route: 048
     Dates: start: 20130215
  5. PEGASYS [Suspect]
     Indication: HEPATITIS C
     Dosage: 180 (UNITS UNKNOWN)
     Route: 058
     Dates: start: 20130215
  6. OMEPRAZOLE [Concomitant]
     Indication: GASTROOESOPHAGEAL REFLUX DISEASE
     Dosage: UNK, QD
     Route: 048
     Dates: start: 20121207

REACTIONS (4)
  - Paraesthesia [Unknown]
  - Scab [Not Recovered/Not Resolved]
  - Rash [Not Recovered/Not Resolved]
  - Diarrhoea [Not Recovered/Not Resolved]
